FAERS Safety Report 6611466-0 (Version None)
Quarter: 2010Q1

REPORT INFORMATION
  Report Type: 
  Country: None (occurrence: None)
  Receive Date: 20100218
  Receipt Date: 20091020
  Transmission Date: 20100710
  Serious: No
  Sender: FDA-Public Use
  Company Number: WAES 0910USA02568

PATIENT
  Age: 54 Year
  Sex: Male
  Weight: 103.8737 kg

DRUGS (10)
  1. ISENTRESS [Suspect]
     Indication: HIV INFECTION
     Dosage: 400 MG/BID/PO
     Route: 048
     Dates: start: 20090101, end: 20090701
  2. ADVAIR DISKUS 100/50 [Concomitant]
  3. CLARITIN [Concomitant]
  4. LOFIBRA [Concomitant]
  5. PRAVACHOL [Concomitant]
  6. SINGULAIR [Concomitant]
  7. VIDEX [Concomitant]
  8. VIREAD [Concomitant]
  9. ALBUTEROL [Concomitant]
  10. CORTICOSTEROIDS (UNSPECIFIED) [Concomitant]

REACTIONS (3)
  - BRONCHOSPASM [None]
  - COUGH [None]
  - WHEEZING [None]
